FAERS Safety Report 18757779 (Version 5)
Quarter: 2021Q2

REPORT INFORMATION
  Report Type: Spontaneous
  Country: US (occurrence: US)
  Receive Date: 20210119
  Receipt Date: 20210521
  Transmission Date: 20210717
  Serious: Yes (Death, Hospitalization, Other)
  Sender: FDA-Public Use
  Company Number: US-INCYTE CORPORATION-2021IN000282

PATIENT

DRUGS (1)
  1. JAKAFI [Suspect]
     Active Substance: RUXOLITINIB
     Indication: CHRONIC GRAFT VERSUS HOST DISEASE
     Dosage: 10 MILLIGRAM, BID
     Route: 048
     Dates: start: 20201225

REACTIONS (8)
  - Off label use [Unknown]
  - Ill-defined disorder [Unknown]
  - Infection [Unknown]
  - Thrombotic microangiopathy [Fatal]
  - Respiratory tract infection [Fatal]
  - Cytopenia [Unknown]
  - Chronic graft versus host disease [Fatal]
  - Mucormycosis [Unknown]

NARRATIVE: CASE EVENT DATE: 20201225
